FAERS Safety Report 5333001-X (Version None)
Quarter: 2007Q2

REPORT INFORMATION
  Report Type: 
  Country: None (occurrence: None)
  Receive Date: 20070306
  Receipt Date: 20060713
  Transmission Date: 20071010
  Serious: Yes (Hospitalization)
  Sender: FDA-Public Use
  Company Number: A03200604529

PATIENT
  Age: 68 Year
  Sex: Female
  Weight: 73.47 kg

DRUGS (6)
  1. PLAVIX [Suspect]
     Indication: STENT PLACEMENT
     Dosage: 75 MG QD ORAL
     Route: 048
     Dates: start: 20060401
  2. GLIPIZIDE [Concomitant]
  3. ROSIGLITAZONE MALEATE [Concomitant]
  4. PAROXETINE HYDROCHLORIDE [Concomitant]
  5. EZETIMIBE [Concomitant]
  6. ACETYLSALICYLIC ACID SRT [Concomitant]

REACTIONS (2)
  - RASH PRURITIC [None]
  - STENT PLACEMENT [None]
